FAERS Safety Report 10269510 (Version 1)
Quarter: 2014Q3

REPORT INFORMATION
  Report Type: Spontaneous
  Country: US (occurrence: US)
  Receive Date: 20140701
  Receipt Date: 20140701
  Transmission Date: 20150326
  Serious: No
  Sender: FDA-Public Use
  Company Number: US-BIOGENIDEC-2014BI062662

PATIENT
  Sex: Female

DRUGS (1)
  1. AVONEX [Suspect]
     Active Substance: INTERFERON BETA-1A
     Indication: MULTIPLE SCLEROSIS
     Route: 030
     Dates: start: 20010729

REACTIONS (4)
  - Impaired healing [Not Recovered/Not Resolved]
  - Urinary tract infection [Unknown]
  - Cellulitis [Not Recovered/Not Resolved]
  - Decreased immune responsiveness [Unknown]
